FAERS Safety Report 15704817 (Version 1)
Quarter: 2018Q4

REPORT INFORMATION
  Report Type: Spontaneous
  Country: US (occurrence: US)
  Receive Date: 20181210
  Receipt Date: 20181210
  Transmission Date: 20190205
  Serious: No
  Sender: FDA-Public Use
  Company Number: US-SA-2018SA332323

PATIENT
  Age: 17 Year
  Sex: Female

DRUGS (2)
  1. DUPIXENT [Suspect]
     Active Substance: DUPILUMAB
     Indication: COLITIS
  2. DUPIXENT [Suspect]
     Active Substance: DUPILUMAB
     Indication: GASTROINTESTINAL INFLAMMATION
     Dosage: 300 MG, QOW
     Route: 058
     Dates: start: 20181105

REACTIONS (1)
  - Product use in unapproved indication [Unknown]

NARRATIVE: CASE EVENT DATE: 201811
